FAERS Safety Report 9887352 (Version 1)
Quarter: 2014Q1

REPORT INFORMATION
  Report Type: Report from Study
  Country: US (occurrence: US)
  Receive Date: 20140211
  Receipt Date: 20140211
  Transmission Date: 20141002
  Serious: Yes (Other)
  Sender: FDA-Public Use
  Company Number: US-ROCHE-1344764

PATIENT
  Sex: 0

DRUGS (3)
  1. BEVACIZUMAB [Suspect]
     Indication: GLIOBLASTOMA
     Dosage: 5-10MG/KG EVERY 2 WEEKS
     Route: 065
  2. LOMUSTINE [Suspect]
     Indication: GLIOBLASTOMA
     Dosage: 67.5-110MG/M2 EVERY 6 WEEKS
     Route: 065
  3. SIROLIMUS [Suspect]
     Indication: GLIOBLASTOMA
     Route: 065

REACTIONS (5)
  - Fatigue [Unknown]
  - Proteinuria [Unknown]
  - Thrombocytopenia [Unknown]
  - Pulmonary fibrosis [Unknown]
  - Hepatic function abnormal [Unknown]
